FAERS Safety Report 6323691-7 (Version None)
Quarter: 2009Q3

REPORT INFORMATION
  Report Type: 
  Country: None (occurrence: None)
  Receive Date: 20090824
  Receipt Date: 20090330
  Transmission Date: 20100115
  Serious: No
  Sender: FDA-Public Use
  Company Number: US-ABBOTT-09P-163-0565565-00

PATIENT
  Sex: Female
  Weight: 65.376 kg

DRUGS (2)
  1. NIASPAN [Suspect]
     Indication: LOW DENSITY LIPOPROTEIN INCREASED
     Route: 048
     Dates: start: 20081025, end: 20090217
  2. NIASPAN [Suspect]
     Route: 048
     Dates: start: 20090218, end: 20090224

REACTIONS (3)
  - DRUG EFFECT DECREASED [None]
  - HAEMORRHAGE SUBCUTANEOUS [None]
  - PAIN [None]
